FAERS Safety Report 10472151 (Version 2)
Quarter: 2014Q4

REPORT INFORMATION
  Report Type: Spontaneous
  Country: US (occurrence: US)
  Receive Date: 20140924
  Receipt Date: 20141017
  Transmission Date: 20150528
  Serious: Yes (Hospitalization)
  Sender: FDA-Public Use
  Company Number: US-009507513-1409USA008473

PATIENT
  Age: 53 Year
  Sex: Male

DRUGS (1)
  1. ZETIA [Suspect]
     Active Substance: EZETIMIBE
     Dosage: 10 MG, ONCE DAILY
     Route: 048
     Dates: start: 20140729

REACTIONS (1)
  - Angiogram [Recovered/Resolved]

NARRATIVE: CASE EVENT DATE: 201409
